FAERS Safety Report 8965274 (Version 1)
Quarter: 2012Q4

REPORT INFORMATION
  Report Type: Report from Study
  Country: US (occurrence: US)
  Receive Date: 20121214
  Receipt Date: 20121214
  Transmission Date: 20130627
  Serious: Yes (Hospitalization)
  Sender: FDA-Public Use
  Company Number: US-ROCHE-1109014

PATIENT
  Age: 36 Year
  Sex: Female
  Weight: 42.3 kg

DRUGS (6)
  1. VISMODEGIB [Suspect]
     Indication: HEPATIC NEOPLASM MALIGNANT
     Dosage: most recent dose of Vismodegib: 15/Aug/2012
     Route: 048
     Dates: start: 20120807
  2. PRILOSEC [Concomitant]
     Indication: GASTROOESOPHAGEAL REFLUX DISEASE
     Route: 048
     Dates: start: 20111129
  3. SENOKOT [Concomitant]
     Indication: CONSTIPATION
     Route: 048
     Dates: start: 20111129
  4. COLACE [Concomitant]
     Indication: CONSTIPATION
     Route: 048
     Dates: start: 20111129
  5. ATIVAN [Concomitant]
     Indication: NAUSEA
     Route: 048
     Dates: start: 20120313
  6. AMBIEN [Concomitant]
     Indication: INSOMNIA
     Route: 048
     Dates: start: 20120814

REACTIONS (2)
  - Vomiting [Recovering/Resolving]
  - Abdominal pain [Recovering/Resolving]
